FAERS Safety Report 5875527-6 (Version None)
Quarter: 2008Q3

REPORT INFORMATION
  Report Type: 
  Country: None (occurrence: None)
  Receive Date: 20080909
  Receipt Date: 20080826
  Transmission Date: 20090109
  Serious: Yes (Disabling)
  Sender: FDA-Public Use
  Company Number: HU-ELI_LILLY_AND_COMPANY-HU200808005692

PATIENT
  Age: 55 Year
  Sex: Male

DRUGS (5)
  1. HUMULIN 70/30 [Suspect]
     Indication: DIABETES MELLITUS
     Dosage: 18 IU, EACH MORNING
     Route: 058
     Dates: start: 20040101
  2. HUMULIN 70/30 [Suspect]
     Dosage: 6 IU, EACH EVENING
     Route: 058
     Dates: start: 20040101
  3. HUMULIN 70/30 [Suspect]
     Dosage: 6 IU, DAILY (1/D)
     Route: 058
  4. DIURETICS [Concomitant]
  5. CALCIUM [Concomitant]

REACTIONS (5)
  - BLINDNESS [None]
  - DIABETES MELLITUS [None]
  - LEG AMPUTATION [None]
  - TOE AMPUTATION [None]
  - VISUAL IMPAIRMENT [None]
